FAERS Safety Report 12993849 (Version 1)
Quarter: 2016Q4

REPORT INFORMATION
  Report Type: Spontaneous
  Country: US (occurrence: US)
  Receive Date: 20161202
  Receipt Date: 20161202
  Transmission Date: 20170207
  Serious: No
  Sender: FDA-Public Use
  Company Number: US-JNJFOC-20161023973

PATIENT

DRUGS (1)
  1. PATRIOT RISPERIDONE ORALLY DISINTEGRATING TABLET S [Suspect]
     Active Substance: RISPERIDONE
     Indication: PRODUCT USED FOR UNKNOWN INDICATION
     Dosage: ORALLY DISINTEGRATING TABLETS
     Route: 048

REACTIONS (1)
  - Drug dose omission [Unknown]
